FAERS Safety Report 6258793-7 (Version None)
Quarter: 2009Q3

REPORT INFORMATION
  Report Type: 
  Country: None (occurrence: None)
  Receive Date: 20090707
  Receipt Date: 20090702
  Transmission Date: 20100115
  Serious: Yes (Other)
  Sender: FDA-Public Use
  Company Number: US-MERCK-0807USA05075

PATIENT
  Age: 61 Year
  Sex: Female

DRUGS (6)
  1. JANUVIA [Suspect]
     Indication: DIABETES MELLITUS
     Route: 048
     Dates: start: 20071220
  2. ZOCOR [Concomitant]
     Route: 065
  3. METFORMIN [Concomitant]
     Route: 065
  4. METFORMIN [Concomitant]
     Route: 065
  5. [THERAPY UNSPECIFIED] [Concomitant]
     Route: 065
  6. CADUET [Concomitant]
     Route: 065
     Dates: end: 20080722

REACTIONS (2)
  - CONTUSION [None]
  - RHABDOMYOLYSIS [None]
